FAERS Safety Report 15618687 (Version 2)
Quarter: 2018Q4

REPORT INFORMATION
  Report Type: Report from Study
  Country: US (occurrence: US)
  Receive Date: 20181114
  Receipt Date: 20181210
  Transmission Date: 20190205
  Serious: Yes (Hospitalization, Other)
  Sender: FDA-Public Use
  Company Number: US-SHIRE-US201844329

PATIENT
  Age: 72 Year
  Sex: Female

DRUGS (2)
  1. GATTEX [Suspect]
     Active Substance: TEDUGLUTIDE\WATER
     Dosage: 0.21 ML, 1X/DAY:QD
     Route: 058
     Dates: start: 20140807
  2. GATTEX [Suspect]
     Active Substance: TEDUGLUTIDE\WATER
     Indication: SHORT-BOWEL SYNDROME
     Dosage: 0.21 ML, 1X/DAY:QD
     Route: 058
     Dates: start: 20140731

REACTIONS (3)
  - Pneumonia [Unknown]
  - Product dose omission [Unknown]
  - Kidney infection [Unknown]

NARRATIVE: CASE EVENT DATE: 201811
